FAERS Safety Report 20468279 (Version 1)
Quarter: 2022Q1

REPORT INFORMATION
  Report Type: Spontaneous
  Country: US (occurrence: None)
  Receive Date: 20220211
  Receipt Date: 20220211
  Transmission Date: 20220423
  Serious: Yes (Life-Threatening)
  Sender: FDA-Public Use
  Company Number: None

PATIENT
  Age: 60 Year
  Sex: Male
  Weight: 66.4 kg

DRUGS (1)
  1. EVUSHELD [Suspect]
     Active Substance: CILGAVIMAB\TIXAGEVIMAB
     Dosage: OTHER FREQUENCY : ONCE;?
     Route: 030
     Dates: start: 20220204

REACTIONS (6)
  - Fatigue [None]
  - Dyspnoea [None]
  - Hypoxia [None]
  - Computerised tomogram abnormal [None]
  - Aortic valve disease [None]
  - Mitral valve disease [None]

NARRATIVE: CASE EVENT DATE: 20220207
